FAERS Safety Report 25135994 (Version 1)
Quarter: 2025Q1

REPORT INFORMATION
  Report Type: Spontaneous
  Country: JP (occurrence: JP)
  Receive Date: 20250328
  Receipt Date: 20250328
  Transmission Date: 20250408
  Serious: Yes (Other)
  Sender: ALEXION PHARMACEUTICALS
  Company Number: JP-ASTRAZENECA-250027852_013020_P_1

PATIENT
  Age: 7 Decade

DRUGS (2)
  1. OSIMERTINIB [Suspect]
     Active Substance: OSIMERTINIB
     Indication: Non-small cell lung cancer
     Dosage: 80 MILLIGRAM, QD
  2. OSIMERTINIB [Suspect]
     Active Substance: OSIMERTINIB
     Indication: Non-small cell lung cancer
     Dosage: 40 MILLIGRAM, QD
     Route: 065

REACTIONS (3)
  - Carcinoembryonic antigen increased [Not Recovered/Not Resolved]
  - Endometrial cancer [Unknown]
  - Nausea [Recovered/Resolved]
